FAERS Safety Report 5716575-6 (Version None)
Quarter: 2008Q2

REPORT INFORMATION
  Report Type: 
  Country: None (occurrence: None)
  Receive Date: 20080424
  Receipt Date: 20080410
  Transmission Date: 20081010
  Serious: Yes (Hospitalization)
  Sender: FDA-Public Use
  Company Number: US-AMGEN-US274034

PATIENT
  Sex: Male

DRUGS (5)
  1. ENBREL [Suspect]
     Indication: RHEUMATOID ARTHRITIS
     Route: 065
     Dates: start: 20030513
  2. TEQUIN [Concomitant]
     Route: 065
  3. PLAVIX [Concomitant]
     Route: 065
  4. TOPROL-XL [Concomitant]
     Route: 065
  5. METHOTREXATE [Concomitant]
     Route: 065

REACTIONS (3)
  - CORONARY ARTERY BYPASS [None]
  - HIP ARTHROPLASTY [None]
  - STENT PLACEMENT [None]
